FAERS Safety Report 23165792 (Version 2)
Quarter: 2023Q4

REPORT INFORMATION
  Report Type: Report from Study
  Country: US (occurrence: US)
  Receive Date: 20231109
  Receipt Date: 20231201
  Transmission Date: 20240110
  Serious: Yes (Hospitalization)
  Sender: FDA-Public Use
  Company Number: US-HORIZON THERAPEUTICS-HZN-2023-008638

PATIENT

DRUGS (20)
  1. TEPEZZA [Suspect]
     Active Substance: TEPROTUMUMAB-TRBW
     Indication: Endocrine ophthalmopathy
     Dosage: FIRST DOSE, 1580 MG, EVERY 3 WEEKS
     Route: 042
     Dates: start: 20230717
  2. TEPEZZA [Suspect]
     Active Substance: TEPROTUMUMAB-TRBW
     Dosage: SECOND DOSE, 1580 MG, VERY 3 WEEKS
     Route: 042
     Dates: start: 20230918
  3. TEPEZZA [Suspect]
     Active Substance: TEPROTUMUMAB-TRBW
     Dosage: THIRD DOSE, 1580 MG, EVERY 3 WEEKS
     Route: 042
     Dates: start: 20231009
  4. TEPEZZA [Suspect]
     Active Substance: TEPROTUMUMAB-TRBW
     Dosage: FOURTH DOSE, 1580 MG, EVERY 3 WEEKS
     Route: 042
     Dates: start: 20231030
  5. TEPEZZA [Suspect]
     Active Substance: TEPROTUMUMAB-TRBW
     Dosage: FIFTH INFUSION
     Route: 042
     Dates: start: 20231120
  6. LISINOPRIL [Concomitant]
     Active Substance: LISINOPRIL
  7. TIZANIDINE [Concomitant]
     Active Substance: TIZANIDINE
  8. MIRALAX [Concomitant]
     Active Substance: POLYETHYLENE GLYCOL 3350
  9. NYSTATIN [Concomitant]
     Active Substance: NYSTATIN
  10. MUPIROCIN [Concomitant]
     Active Substance: MUPIROCIN
  11. SINGULAIR [Concomitant]
     Active Substance: MONTELUKAST SODIUM
  12. ASMANEX HFA [Concomitant]
     Active Substance: MOMETASONE FUROATE
  13. MELATONIN [Concomitant]
     Active Substance: MELATONIN
  14. CLARITIN [Concomitant]
     Active Substance: LORATADINE
  15. GARLIC [Concomitant]
     Active Substance: GARLIC
  16. FLONASE [Concomitant]
     Active Substance: FLUTICASONE PROPIONATE
  17. DEPAKOTE [Concomitant]
     Active Substance: DIVALPROEX SODIUM
  18. VITAMIN D [Concomitant]
     Active Substance: VITAMIN D NOS
  19. VITAMIN C [Concomitant]
     Active Substance: ASCORBIC ACID
  20. ALBUTEROL [Concomitant]
     Active Substance: ALBUTEROL

REACTIONS (2)
  - Joint effusion [Unknown]
  - Inappropriate schedule of product administration [Unknown]

NARRATIVE: CASE EVENT DATE: 20230101
